FAERS Safety Report 8404874-9 (Version None)
Quarter: 2012Q2

REPORT INFORMATION
  Report Type: 
  Country: None (occurrence: None)
  Receive Date: 20120601
  Receipt Date: 20111027
  Transmission Date: 20120825
  Serious: No
  Sender: FDA-Public Use
  Company Number: US-ASTRAZENECA-2011SE65525

PATIENT
  Age: 55 Year
  Sex: Female

DRUGS (1)
  1. ATACAND HCT [Suspect]
     Route: 048

REACTIONS (2)
  - GLUCOSE TOLERANCE IMPAIRED [None]
  - DIABETES MELLITUS [None]
